FAERS Safety Report 8915391 (Version 3)
Quarter: 2013Q2

REPORT INFORMATION
  Report Type: Report from Study
  Country: DE (occurrence: DE)
  Receive Date: 20121116
  Receipt Date: 20130411
  Transmission Date: 20140414
  Serious: Yes (Hospitalization)
  Sender: FDA-Public Use
  Company Number: DE-BAXTER-2012BAX023356

PATIENT
  Age: 72 Year
  Sex: Female
  Weight: 48 kg

DRUGS (71)
  1. ENDOXAN 1G [Suspect]
     Indication: B-CELL LYMPHOMA
     Route: 042
     Dates: start: 20120727
  2. ENDOXAN 1G [Suspect]
     Route: 042
     Dates: start: 20120907
  3. DOXORUBICIN [Suspect]
     Indication: B-CELL LYMPHOMA
     Route: 042
     Dates: start: 20120727
  4. DOXORUBICIN [Suspect]
     Route: 042
     Dates: start: 20120907
  5. VINCRISTINE [Suspect]
     Indication: B-CELL LYMPHOMA
     Route: 040
     Dates: start: 20120727
  6. VINCRISTINE [Suspect]
     Route: 040
     Dates: start: 20120907
  7. PREDNISONE [Suspect]
     Indication: B-CELL LYMPHOMA
     Route: 065
     Dates: start: 20120727
  8. PREDNISONE [Suspect]
     Route: 065
     Dates: start: 20120911
  9. PANTOZOL [Concomitant]
     Indication: GASTRITIS PROPHYLAXIS
     Route: 065
     Dates: start: 20120723
  10. NOVALGIN [Concomitant]
     Indication: PRODUCT USED FOR UNKNOWN INDICATION
     Route: 065
     Dates: start: 20120723
  11. VALORON [Concomitant]
     Indication: PRODUCT USED FOR UNKNOWN INDICATION
     Route: 065
     Dates: start: 20120723
  12. LYRICA [Concomitant]
     Indication: PRODUCT USED FOR UNKNOWN INDICATION
     Route: 065
     Dates: start: 20120723
  13. LAXOBERAL [Concomitant]
     Indication: CONSTIPATION
     Route: 065
     Dates: start: 20120723
  14. CLEXANE [Concomitant]
     Indication: ATRIAL FLUTTER
     Route: 065
     Dates: start: 20120802
  15. GLANDOMED [Concomitant]
     Indication: OPPORTUNISTIC INFECTION PROPHYLAXIS
     Route: 065
     Dates: start: 20120802
  16. GLANDOMED [Concomitant]
     Route: 065
     Dates: start: 20120915, end: 20120915
  17. OXAZEPAM [Concomitant]
     Indication: SLEEP DISORDER
     Route: 065
     Dates: start: 20120802
  18. PARACETAMOL [Concomitant]
     Indication: PREMEDICATION
     Route: 065
     Dates: start: 20120816, end: 20120816
  19. PARACETAMOL [Concomitant]
     Route: 065
     Dates: start: 20120726, end: 20120726
  20. PARACETAMOL [Concomitant]
     Route: 065
     Dates: start: 20120802, end: 20120802
  21. PARACETAMOL [Concomitant]
     Route: 065
     Dates: start: 20120809, end: 20120809
  22. PARACETAMOL [Concomitant]
     Route: 065
     Dates: start: 20120927, end: 20120927
  23. PREDNISOLONE [Concomitant]
     Indication: PREMEDICATION
     Route: 065
     Dates: start: 20120816, end: 20120816
  24. PREDNISOLONE [Concomitant]
     Route: 065
     Dates: start: 20120906, end: 20120906
  25. PREDNISOLONE [Concomitant]
     Route: 065
     Dates: start: 20120726, end: 20120726
  26. PREDNISOLONE [Concomitant]
     Route: 065
     Dates: start: 20120802, end: 20120802
  27. PREDNISOLONE [Concomitant]
     Route: 065
     Dates: start: 20120809, end: 20120809
  28. PREDNISOLONE [Concomitant]
     Route: 065
     Dates: start: 20120927, end: 20120927
  29. PREDNISOLONE [Concomitant]
     Route: 065
     Dates: start: 20121019, end: 20121019
  30. SOSTRIL [Concomitant]
     Indication: PREMEDICATION
     Route: 065
     Dates: start: 20120816, end: 20120816
  31. SOSTRIL [Concomitant]
     Route: 065
     Dates: start: 20120906, end: 20120906
  32. SOSTRIL [Concomitant]
     Route: 065
     Dates: start: 20120726, end: 20120726
  33. SOSTRIL [Concomitant]
     Route: 065
     Dates: start: 20120802, end: 20120802
  34. SOSTRIL [Concomitant]
     Route: 065
     Dates: start: 20120809, end: 20120809
  35. SOSTRIL [Concomitant]
     Route: 065
     Dates: start: 20120927, end: 20120927
  36. SOSTRIL [Concomitant]
     Route: 065
     Dates: start: 20121019, end: 20121019
  37. PENISTIL [Concomitant]
     Indication: PREMEDICATION
     Route: 065
     Dates: start: 20120816, end: 20120816
  38. PENISTIL [Concomitant]
     Route: 065
     Dates: start: 20120906, end: 20120906
  39. PENISTIL [Concomitant]
     Route: 065
     Dates: start: 20120726, end: 20120726
  40. PENISTIL [Concomitant]
     Route: 065
     Dates: start: 20120802, end: 20120802
  41. PENISTIL [Concomitant]
     Route: 065
     Dates: start: 20120809, end: 20120809
  42. PENISTIL [Concomitant]
     Route: 065
     Dates: start: 20120927, end: 20120927
  43. PENISTIL [Concomitant]
     Route: 065
     Dates: start: 20121019, end: 20121019
  44. ACICLOVIR [Concomitant]
     Indication: ANTIVIRAL PROPHYLAXIS
     Route: 065
     Dates: start: 20120816, end: 20120816
  45. MESNA [Concomitant]
     Indication: PREMEDICATION
     Route: 065
     Dates: start: 20120817, end: 20120817
  46. MESNA [Concomitant]
     Route: 065
     Dates: start: 20120907, end: 20120907
  47. MESNA [Concomitant]
     Route: 065
     Dates: start: 20120727, end: 20120727
  48. MESNA [Concomitant]
     Route: 065
     Dates: start: 20120928, end: 20120928
  49. ZOFRAN [Concomitant]
     Indication: PREMEDICATION
     Route: 065
     Dates: start: 20120817, end: 20120817
  50. KEVATRIL [Concomitant]
     Indication: PREMEDICATION
     Route: 065
     Dates: start: 20120907, end: 20120907
  51. KEVATRIL [Concomitant]
     Route: 065
     Dates: start: 20120727, end: 20120727
  52. KEVATRIL [Concomitant]
     Route: 065
     Dates: start: 20120928, end: 20120928
  53. KEVATRIL [Concomitant]
     Route: 065
     Dates: start: 20121020, end: 20121020
  54. SAB SIMPLEX [Concomitant]
     Indication: CONSTIPATION
     Route: 065
     Dates: start: 20120809
  55. CONCOR [Concomitant]
     Indication: ATRIAL FLUTTER
     Route: 065
     Dates: start: 20120801
  56. METACLOPRAMIDE [Concomitant]
     Indication: PROPHYLAXIS OF NAUSEA AND VOMITING
     Route: 065
     Dates: start: 20120817, end: 20120817
  57. SODIUM POLYSTYRENE SULFONATE [Concomitant]
     Indication: HYPERKALAEMIA
     Route: 065
     Dates: start: 20120723, end: 20120723
  58. FUROSEMIDE [Concomitant]
     Indication: OEDEMA
     Route: 065
     Dates: start: 20120728, end: 20120728
  59. IBUPROFEN [Concomitant]
     Indication: PRODUCT USED FOR UNKNOWN INDICATION
     Route: 065
     Dates: start: 20120801, end: 20120803
  60. KALINOR [Concomitant]
     Indication: ATRIAL FLUTTER
     Route: 065
     Dates: start: 20120801, end: 20120801
  61. VALERIAN [Concomitant]
     Indication: SLEEP DISORDER
     Route: 065
     Dates: start: 20120801, end: 20120801
  62. RED BLOOD CELLS [Concomitant]
     Indication: ANAEMIA
     Route: 065
     Dates: start: 20120809, end: 20120809
  63. LORAZEPAM [Concomitant]
     Indication: PRODUCT USED FOR UNKNOWN INDICATION
     Route: 065
  64. KONAKION [Concomitant]
     Indication: POLYNEUROPATHY
     Route: 065
     Dates: start: 20121018, end: 20121018
  65. CIPROFLOXACIN [Concomitant]
     Indication: URINARY TRACT INFECTION
     Route: 065
     Dates: start: 20121005, end: 20121005
  66. LOPERAMIDE [Concomitant]
     Indication: DIARRHOEA
     Route: 065
     Dates: start: 201208, end: 20120809
  67. BISOPROLOL [Concomitant]
     Indication: PRODUCT USED FOR UNKNOWN INDICATION
     Route: 065
     Dates: start: 20130228, end: 20130228
  68. CODEINE [Concomitant]
     Indication: PRODUCT USED FOR UNKNOWN INDICATION
     Route: 065
     Dates: start: 20130228, end: 20130228
  69. ZOPICLONE [Concomitant]
     Indication: PRODUCT USED FOR UNKNOWN INDICATION
     Route: 065
     Dates: start: 20130228, end: 20130228
  70. SPIRIVA [Concomitant]
     Indication: COUGH
     Route: 065
     Dates: start: 20130301, end: 20130301
  71. THYME [Concomitant]
     Indication: COUGH
     Route: 065
     Dates: start: 20130228, end: 20130228

REACTIONS (3)
  - Device related infection [Recovered/Resolved]
  - Pyrexia [Not Recovered/Not Resolved]
  - Device related infection [Not Recovered/Not Resolved]
